FAERS Safety Report 9549591 (Version 2)
Quarter: 2013Q4

REPORT INFORMATION
  Report Type: Report from Study
  Country: JP (occurrence: JP)
  Receive Date: 20130924
  Receipt Date: 20131022
  Transmission Date: 20140711
  Serious: No
  Sender: FDA-Public Use
  Company Number: JP-B.I. PHARMACEUTICALS,INC./RIDGEFIELD-2013-BI-28656NB

PATIENT
  Age: 75 Year
  Sex: Male
  Weight: 49 kg

DRUGS (7)
  1. TRAZENTA [Suspect]
     Indication: TYPE 2 DIABETES MELLITUS
     Dosage: 5 MG
     Route: 048
     Dates: start: 20130327, end: 20130911
  2. DORNER [Concomitant]
     Dosage: 40 MCG
     Route: 048
  3. MEVALOTIN [Concomitant]
     Dosage: 10 MG
     Route: 048
  4. FRANDOL [Concomitant]
     Dosage: 40 MG
     Route: 062
  5. BAYASPIRIN [Concomitant]
     Dosage: 100 MG
     Route: 048
  6. CALBLOCK [Concomitant]
     Dosage: 8 MG
     Route: 048
  7. OLMETEC [Concomitant]
     Dosage: 10 MG

REACTIONS (1)
  - Toxic skin eruption [Not Recovered/Not Resolved]
